FAERS Safety Report 9000847 (Version 2)
Quarter: 2013Q1

REPORT INFORMATION
  Report Type: Spontaneous
  Country: US (occurrence: None)
  Receive Date: 20121226
  Receipt Date: 20130130
  Transmission Date: 20140127
  Serious: Yes (Hospitalization)
  Sender: FDA-Public Use
  Company Number: SP06281

PATIENT
  Age: 67 Year
  Sex: Male
  Weight: 75.3 kg

DRUGS (3)
  1. OSMOPREP (TABLETS) [Suspect]
     Indication: BOWEL PREPARATION
     Route: 048
     Dates: start: 20121212, end: 20121213
  2. SYNTHROID [Concomitant]
  3. LISINOPRIL [Concomitant]

REACTIONS (15)
  - Atrial fibrillation [None]
  - Dizziness [None]
  - Blood potassium decreased [None]
  - Carbon dioxide decreased [None]
  - Blood creatine phosphokinase increased [None]
  - Chest X-ray abnormal [None]
  - Blood creatinine increased [None]
  - Blood phosphorus increased [None]
  - Blood pressure increased [None]
  - Blood chloride increased [None]
  - Anion gap increased [None]
  - Diastolic dysfunction [None]
  - Aortic valve sclerosis [None]
  - Atrial flutter [None]
  - Sinus bradycardia [None]
